FAERS Safety Report 17044201 (Version 3)
Quarter: 2020Q1

REPORT INFORMATION
  Report Type: Report from Study
  Country: FR (occurrence: FR)
  Receive Date: 20191118
  Receipt Date: 20200317
  Transmission Date: 20200409
  Serious: Yes (Other)
  Sender: FDA-Public Use
  Company Number: FR-JNJFOC-20191112174

PATIENT
  Age: 44 Year
  Sex: Female
  Weight: 100 kg

DRUGS (14)
  1. ACIDE FOLIQUE [Concomitant]
     Active Substance: FOLIC ACID
     Route: 048
     Dates: start: 201303
  2. AMYCOR [Concomitant]
     Active Substance: BIFONAZOLE
     Route: 065
     Dates: start: 20141007
  3. KETODERM                           /00532501/ [Concomitant]
     Active Substance: KETOCONAZOLE
     Route: 065
     Dates: start: 20160726, end: 20160823
  4. DAIVOBET [Concomitant]
     Active Substance: BETAMETHASONE DIPROPIONATE\CALCIPOTRIENE
     Route: 065
     Dates: start: 20141007
  5. TRINORDIOL [Concomitant]
     Active Substance: ETHINYL ESTRADIOL\LEVONORGESTREL
     Route: 065
  6. STELARA [Suspect]
     Active Substance: USTEKINUMAB
     Indication: PSORIASIS
     Route: 058
     Dates: start: 20180420, end: 20190901
  7. ACIDE FOLIQUE [Concomitant]
     Active Substance: FOLIC ACID
     Route: 065
     Dates: start: 20141007
  8. KETODERM                           /00532501/ [Concomitant]
     Active Substance: KETOCONAZOLE
     Route: 065
     Dates: start: 20160726
  9. PROTOPIC [Concomitant]
     Active Substance: TACROLIMUS
     Dosage: PROTOPIC 1%
     Route: 065
  10. METHOTREXATE. [Concomitant]
     Active Substance: METHOTREXATE
     Route: 048
     Dates: start: 20140408
  11. FLIXOVATE [Concomitant]
     Active Substance: FLUTICASONE PROPIONATE
     Route: 065
  12. METHOTREXATE. [Concomitant]
     Active Substance: METHOTREXATE
     Route: 048
     Dates: start: 20170721, end: 20180401
  13. EPI                                /00699302/ [Concomitant]
     Route: 065
     Dates: start: 20191030, end: 20191105
  14. METHOTREXATE. [Concomitant]
     Active Substance: METHOTREXATE
     Route: 048
     Dates: start: 201303

REACTIONS (3)
  - Product use issue [Unknown]
  - Off label use [Unknown]
  - Invasive ductal breast carcinoma [Not Recovered/Not Resolved]

NARRATIVE: CASE EVENT DATE: 201909
